FAERS Safety Report 6155129-7 (Version None)
Quarter: 2009Q2

REPORT INFORMATION
  Report Type: 
  Country: None (occurrence: None)
  Receive Date: 20090415
  Receipt Date: 20070326
  Transmission Date: 20091009
  Serious: Yes (Disabling)
  Sender: FDA-Public Use
  Company Number: US-ASTRAZENECA-2006UW24724

PATIENT
  Age: 23708 Day
  Sex: Male
  Weight: 110.4 kg

DRUGS (11)
  1. SEROQUEL [Suspect]
     Indication: DEPRESSION
     Dosage: 25 - 50 MG
     Route: 048
     Dates: start: 20040621
  2. SEROQUEL [Suspect]
     Indication: ANXIETY
     Dosage: 25 - 50 MG
     Route: 048
     Dates: start: 20040621
  3. SEROQUEL [Suspect]
     Indication: IRRITABILITY
     Dosage: 25 - 50 MG
     Route: 048
     Dates: start: 20040621
  4. SEROQUEL [Suspect]
     Indication: DISTURBANCE IN ATTENTION
     Dosage: 25 - 50 MG
     Route: 048
     Dates: start: 20040621
  5. SEROQUEL [Suspect]
     Indication: ADJUSTMENT DISORDER
     Dosage: 25 - 50 MG
     Route: 048
     Dates: start: 20040621
  6. EFFEXOR [Concomitant]
  7. ZOCOR [Concomitant]
  8. GLUCOPHAGE XR [Concomitant]
  9. GLUCOTROL [Concomitant]
  10. LISINOPRIL [Concomitant]
  11. TERAZOSIN [Concomitant]

REACTIONS (14)
  - ANAEMIA [None]
  - AXILLARY MASS [None]
  - BRONCHITIS [None]
  - CERUMEN IMPACTION [None]
  - DIVERTICULUM [None]
  - HIATUS HERNIA [None]
  - HYPERKERATOSIS [None]
  - ILL-DEFINED DISORDER [None]
  - OESOPHAGITIS ULCERATIVE [None]
  - ONYCHOMYCOSIS [None]
  - PNEUMONIA [None]
  - PULMONARY HILUM MASS [None]
  - RENAL FAILURE CHRONIC [None]
  - VITREOUS DETACHMENT [None]
